FAERS Safety Report 16473717 (Version 1)
Quarter: 2019Q2

REPORT INFORMATION
  Report Type: Spontaneous
  Country: GB (occurrence: GB)
  Receive Date: 20190625
  Receipt Date: 20190625
  Transmission Date: 20190711
  Serious: Yes (Other)
  Sender: FDA-Public Use
  Company Number: GB-PFIZER INC-2019264224

PATIENT
  Age: 38 Year
  Sex: Male

DRUGS (1)
  1. EPANUTIN [Suspect]
     Active Substance: PHENYTOIN SODIUM
     Dosage: 150 MG, TWICE DAILY

REACTIONS (2)
  - Seizure [Unknown]
  - Abnormal behaviour [Unknown]
